FAERS Safety Report 7985967-7 (Version None)
Quarter: 2011Q4

REPORT INFORMATION
  Report Type: 
  Country: None (occurrence: None)
  Receive Date: 20111216
  Receipt Date: 20111213
  Transmission Date: 20120403
  Serious: Yes (Hospitalization, Disabling)
  Sender: FDA-Public Use
  Company Number: US-MERCK-1104USA02652

PATIENT
  Age: 46 Year
  Sex: Female

DRUGS (7)
  1. FOSAMAX [Suspect]
     Route: 048
     Dates: start: 20080101
  2. LEVOTHROID [Concomitant]
     Indication: HYPOTHYROIDISM
     Route: 065
     Dates: start: 19850101
  3. FOSAMAX [Suspect]
     Route: 048
     Dates: start: 20011101, end: 20070101
  4. FOSAMAX PLUS D [Suspect]
     Indication: OSTEOPENIA
     Route: 048
     Dates: start: 20070201, end: 20080501
  5. MULTI-VITAMINS [Concomitant]
     Route: 065
     Dates: start: 19800101
  6. FOSAMAX [Suspect]
     Indication: OSTEOPENIA
     Route: 048
     Dates: start: 19950101, end: 20011001
  7. CALCIUM (UNSPECIFIED) [Concomitant]
     Route: 065
     Dates: start: 19910101

REACTIONS (7)
  - LOW TURNOVER OSTEOPATHY [None]
  - ADVERSE EVENT [None]
  - FRACTURE NONUNION [None]
  - FLUID RETENTION [None]
  - FEMUR FRACTURE [None]
  - TOOTH DISORDER [None]
  - GINGIVAL DISORDER [None]
